FAERS Safety Report 10395128 (Version 6)
Quarter: 2015Q1

REPORT INFORMATION
  Report Type: Spontaneous
  Country: US (occurrence: US)
  Receive Date: 20140820
  Receipt Date: 20150303
  Transmission Date: 20150720
  Serious: Yes (Hospitalization, Disabling, Other)
  Sender: FDA-Public Use
  Company Number: US-UNITED THERAPEUTICS-UNT-2014-001473

PATIENT
  Sex: Female
  Weight: 40.82 kg

DRUGS (5)
  1. REMODULIN [Suspect]
     Active Substance: TREPROSTINIL
     Indication: COR PULMONALE CHRONIC
     Dosage: 0.038 ?G/KG, CONTINUING
     Route: 058
     Dates: start: 20140523
  2. REMODULIN [Suspect]
     Active Substance: TREPROSTINIL
     Indication: PULMONARY HYPERTENSION
     Dosage: 0.02 ?G/KG/MIN, CONTINUING
     Route: 058
     Dates: start: 20140524
  3. REMODULIN [Suspect]
     Active Substance: TREPROSTINIL
     Dosage: 0.0225 ?G/KG, CONTINUING
     Route: 058
     Dates: start: 20140524
  4. REMODULIN [Suspect]
     Active Substance: TREPROSTINIL
     Dosage: 0.0385 ?G/KG/MIN, CONTINUING
     Route: 058
     Dates: start: 20140524
  5. LETAIRIS [Concomitant]
     Active Substance: AMBRISENTAN
     Indication: PRODUCT USED FOR UNKNOWN INDICATION

REACTIONS (12)
  - Nausea [Unknown]
  - Mobility decreased [Recovered/Resolved]
  - Diarrhoea [Unknown]
  - Pain in extremity [Unknown]
  - Impaired gastric emptying [Unknown]
  - Weight decreased [Recovered/Resolved]
  - Dyspnoea [Unknown]
  - Decreased appetite [Unknown]
  - Infusion site pain [Recovered/Resolved]
  - Irritable bowel syndrome [Unknown]
  - Headache [Unknown]
  - Fatigue [Unknown]

NARRATIVE: CASE EVENT DATE: 2014
